APPROVED DRUG PRODUCT: MIFEPREX
Active Ingredient: MIFEPRISTONE
Strength: 200MG
Dosage Form/Route: TABLET;ORAL
Application: N020687 | Product #001 | TE Code: AB
Applicant: DANCO LABORATORIES LLC
Approved: Sep 28, 2000 | RLD: Yes | RS: Yes | Type: RX